FAERS Safety Report 9728335 (Version 2)
Quarter: 2013Q4

REPORT INFORMATION
  Report Type: Report from Study
  Country: KR (occurrence: KR)
  Receive Date: 20131204
  Receipt Date: 20131216
  Transmission Date: 20140711
  Serious: No
  Sender: FDA-Public Use
  Company Number: PHHY2013KR138366

PATIENT
  Age: 21 Year
  Sex: Male

DRUGS (1)
  1. AMN107 [Suspect]
     Indication: CHRONIC MYELOID LEUKAEMIA
     Dosage: 600 MG, PAR DAY
     Route: 048
     Dates: start: 20130522

REACTIONS (1)
  - Nasopharyngitis [Recovered/Resolved]
